FAERS Safety Report 5886753-4 (Version None)
Quarter: 2008Q3

REPORT INFORMATION
  Report Type: 
  Country: None (occurrence: None)
  Receive Date: 20080917
  Receipt Date: 20080916
  Transmission Date: 20090109
  Serious: Yes (Death, Other)
  Sender: FDA-Public Use
  Company Number: US-BRISTOL-MYERS SQUIBB COMPANY-14336556

PATIENT
  Sex: Female

DRUGS (1)
  1. PRAVACHOL [Suspect]

REACTIONS (1)
  - COLON CANCER [None]
